FAERS Safety Report 6186585-6 (Version None)
Quarter: 2009Q2

REPORT INFORMATION
  Report Type: 
  Country: None (occurrence: None)
  Receive Date: 20090512
  Receipt Date: 20090428
  Transmission Date: 20091009
  Serious: Yes (Other)
  Sender: FDA-Public Use
  Company Number: AT-SOLVAY-00309002372

PATIENT
  Sex: Male

DRUGS (5)
  1. TESTOCAPS [Concomitant]
     Indication: HYPOGONADISM
     Dosage: DAILY DOSE:  UNKNOWN
     Route: 065
     Dates: start: 20050101
  2. TESTOSTERONE [Suspect]
     Indication: HYPOGONADISM
     Dosage: DAILY DOSE:  UNKNOWN
     Route: 065
     Dates: start: 20050101
  3. TESTOVIRON [Suspect]
     Indication: HYPOGONADISM
     Dosage: DAILY DOSE:  UNKNOWN
     Route: 065
     Dates: start: 19820101, end: 20050101
  4. TESTOVIRON [Suspect]
     Dosage: DAILY DOSE:  UNKNOWN
     Route: 065
  5. NEBIDO [Suspect]
     Indication: HYPOGONADISM
     Dosage: DAILY DOSE:  UNKNOWN
     Route: 065
     Dates: start: 20050101

REACTIONS (5)
  - ASTHENIA [None]
  - BONE PAIN [None]
  - CEREBROVASCULAR ACCIDENT [None]
  - PRURITUS [None]
  - RASH [None]
